FAERS Safety Report 10499541 (Version 1)
Quarter: 2014Q4

REPORT INFORMATION
  Report Type: Spontaneous
  Country: US (occurrence: US)
  Receive Date: 20141006
  Receipt Date: 20141006
  Transmission Date: 20150528
  Serious: No
  Sender: FDA-Public Use
  Company Number: US-AMGEN INC.-USASP2014036454

PATIENT
  Sex: Female

DRUGS (3)
  1. LOVENOX [Concomitant]
     Active Substance: ENOXAPARIN SODIUM
  2. WARFARIN [Concomitant]
     Active Substance: WARFARIN
  3. PROLIA [Suspect]
     Active Substance: DENOSUMAB
     Indication: OSTEOPOROSIS POSTMENOPAUSAL
     Dosage: UNK
     Route: 065
     Dates: start: 201306

REACTIONS (5)
  - International normalised ratio fluctuation [Unknown]
  - Incorrect product storage [Unknown]
  - Adverse event [Unknown]
  - Fatigue [Unknown]
  - Dyspepsia [Unknown]
